FAERS Safety Report 6147321-2 (Version None)
Quarter: 2009Q2

REPORT INFORMATION
  Report Type: 
  Country: None (occurrence: None)
  Receive Date: 20090408
  Receipt Date: 20090327
  Transmission Date: 20091009
  Serious: Yes (Hospitalization)
  Sender: FDA-Public Use
  Company Number: PHHY2009JP09955

PATIENT
  Age: 49 Year
  Sex: Male

DRUGS (2)
  1. TEGRETOL [Suspect]
     Indication: TRIGEMINAL NEURALGIA
     Dosage: UNK
  2. TEGRETOL [Suspect]
     Indication: PAIN

REACTIONS (4)
  - DRUG ERUPTION [None]
  - FACIAL PAIN [None]
  - PAIN [None]
  - PERIPHERAL NERVE DECOMPRESSION [None]
